FAERS Safety Report 7197624-8 (Version None)
Quarter: 2010Q4

REPORT INFORMATION
  Report Type: 
  Country: None (occurrence: None)
  Receive Date: 20101213
  Receipt Date: 20101117
  Transmission Date: 20110411
  Serious: Yes (Hospitalization)
  Sender: FDA-Public Use
  Company Number: 15374614

PATIENT
  Age: 38 Year
  Sex: Female

DRUGS (1)
  1. PERFALGAN IV (ACETAMINOPHEN) [Suspect]
     Indication: PYREXIA
     Dosage: 1 GRAM IV
     Route: 042

REACTIONS (3)
  - ANAPHYLACTIC SHOCK [None]
  - FACE OEDEMA [None]
  - FEELING HOT [None]
